FAERS Safety Report 5715928-X (Version None)
Quarter: 2008Q2

REPORT INFORMATION
  Report Type: 
  Country: None (occurrence: None)
  Receive Date: 20080424
  Receipt Date: 20080410
  Transmission Date: 20081010
  Serious: Yes (Other)
  Sender: FDA-Public Use
  Company Number: US-BAYER-200811550BCC

PATIENT
  Age: 63 Year
  Sex: Female
  Weight: 56 kg

DRUGS (3)
  1. ASPIRIN [Suspect]
     Indication: ISCHAEMIC HEART DISEASE PROPHYLAXIS
     Dosage: UNIT DOSE: 81 MG
     Route: 048
     Dates: end: 20080117
  2. EQUATE MULTIVITAMIN [Concomitant]
  3. VYTORIN [Concomitant]

REACTIONS (2)
  - INTRA-ABDOMINAL HAEMATOMA [None]
  - NASOPHARYNGITIS [None]
